FAERS Safety Report 7624843-6 (Version None)
Quarter: 2011Q3

REPORT INFORMATION
  Report Type: 
  Country: None (occurrence: None)
  Receive Date: 20110720
  Receipt Date: 20110713
  Transmission Date: 20111222
  Serious: Yes (Other)
  Sender: FDA-Public Use
  Company Number: US-B.I. PHARMACEUTICALS,INC./RIDGEFIELD-2011-BP-04244BP

PATIENT
  Sex: Female

DRUGS (8)
  1. TRILIPIX [Concomitant]
     Indication: BLOOD TRIGLYCERIDES INCREASED
     Dates: start: 20050101
  2. PREMARIN [Concomitant]
     Indication: HOT FLUSH
     Dates: start: 19800101
  3. FISH OIL [Concomitant]
     Indication: DRY EYE
     Dates: start: 19900101
  4. SYNTHROID [Concomitant]
     Indication: HYPOTHYROIDISM
     Dates: start: 19900101
  5. COREG [Concomitant]
     Indication: HYPERTENSION
     Dates: start: 20020101
  6. PRADAXA [Suspect]
     Indication: ATRIAL FIBRILLATION
     Dosage: 300 MG
     Dates: start: 20101101
  7. AMIODARONE HCL [Concomitant]
     Indication: ATRIAL FIBRILLATION
     Dates: start: 20101201
  8. XETIA [Concomitant]
     Indication: BLOOD CHOLESTEROL INCREASED
     Dates: start: 20050101

REACTIONS (4)
  - HAEMATOMA [None]
  - CARDIAC PACEMAKER INSERTION [None]
  - DYSPEPSIA [None]
  - DYSPHAGIA [None]
